FAERS Safety Report 9687456 (Version 1)
Quarter: 2013Q4

REPORT INFORMATION
  Report Type: Spontaneous
  Country: US (occurrence: US)
  Receive Date: 20131114
  Receipt Date: 20131114
  Transmission Date: 20140711
  Serious: No
  Sender: FDA-Public Use
  Company Number: US-BIOGENIDEC-2013BI107479

PATIENT
  Age: 32 Year
  Sex: Female

DRUGS (3)
  1. AVONEX [Suspect]
     Indication: MULTIPLE SCLEROSIS
     Route: 030
     Dates: start: 2002, end: 2007
  2. AVONEX [Suspect]
     Indication: MULTIPLE SCLEROSIS
     Route: 030
     Dates: start: 20131002
  3. TECFIDERA [Concomitant]
     Indication: MULTIPLE SCLEROSIS
     Dates: start: 20130806, end: 20130926

REACTIONS (3)
  - Stress [Unknown]
  - Depressed mood [Recovered/Resolved]
  - Multiple sclerosis relapse [Unknown]
